FAERS Safety Report 25077359 (Version 8)
Quarter: 2025Q2

REPORT INFORMATION
  Report Type: Spontaneous
  Country: CA (occurrence: CA)
  Receive Date: 20250314
  Receipt Date: 20250430
  Transmission Date: 20250717
  Serious: Yes (Hospitalization)
  Sender: CSL BEHRING
  Company Number: CA-BEH-2025198734

PATIENT
  Age: 82 Year
  Sex: Female
  Weight: 68 kg

DRUGS (22)
  1. HIZENTRA [Suspect]
     Active Substance: HUMAN IMMUNOGLOBULIN G
     Indication: Secondary immunodeficiency
     Dosage: UNK, QW
     Route: 058
     Dates: start: 20250108
  2. HIZENTRA [Suspect]
     Active Substance: HUMAN IMMUNOGLOBULIN G
     Dosage: 8 G, QW
     Route: 058
     Dates: start: 20250305
  3. HIZENTRA [Suspect]
     Active Substance: HUMAN IMMUNOGLOBULIN G
     Route: 065
     Dates: start: 20250312
  4. HIZENTRA [Suspect]
     Active Substance: HUMAN IMMUNOGLOBULIN G
     Route: 065
     Dates: start: 20250318
  5. HIZENTRA [Suspect]
     Active Substance: HUMAN IMMUNOGLOBULIN G
     Dosage: UNK, QW
     Route: 058
     Dates: start: 20250324
  6. HIZENTRA [Suspect]
     Active Substance: HUMAN IMMUNOGLOBULIN G
     Dosage: 8 G, QW
     Route: 058
     Dates: start: 20250108
  7. HIZENTRA [Suspect]
     Active Substance: HUMAN IMMUNOGLOBULIN G
     Route: 065
     Dates: start: 20250402
  8. HIZENTRA [Suspect]
     Active Substance: HUMAN IMMUNOGLOBULIN G
     Dosage: 8 G, QW
     Route: 058
     Dates: start: 20250108
  9. HIZENTRA [Suspect]
     Active Substance: HUMAN IMMUNOGLOBULIN G
     Route: 065
     Dates: start: 20250407
  10. HIZENTRA [Suspect]
     Active Substance: HUMAN IMMUNOGLOBULIN G
     Route: 065
     Dates: start: 20250422
  11. SULFATRIM [Concomitant]
     Active Substance: SULFAMETHOXAZOLE\TRIMETHOPRIM
  12. VALACYCLOVIR [Concomitant]
     Active Substance: VALACYCLOVIR HYDROCHLORIDE
  13. MYRBETRIQ [Concomitant]
     Active Substance: MIRABEGRON
  14. PREGABALIN [Concomitant]
     Active Substance: PREGABALIN
  15. POTASSIUM [Concomitant]
     Active Substance: POTASSIUM
  16. CALCIUM\CHOLECALCIFEROL [Concomitant]
     Active Substance: CALCIUM\CHOLECALCIFEROL
  17. VITAMIN B12 [Concomitant]
     Active Substance: CYANOCOBALAMIN
  18. ACETAMINOPHEN [Concomitant]
     Active Substance: ACETAMINOPHEN
  19. RIVOTRIL [Concomitant]
     Active Substance: CLONAZEPAM
  20. VAGIFEM [Concomitant]
     Active Substance: ESTRADIOL
  21. TECVAYLI [Concomitant]
     Active Substance: TECLISTAMAB-CQYV
  22. IRON [Concomitant]
     Active Substance: IRON

REACTIONS (22)
  - Hospitalisation [Unknown]
  - Infusion site bruising [Unknown]
  - Infusion site erythema [Unknown]
  - Injection site oedema [Unknown]
  - Infusion site erythema [Unknown]
  - Infusion site oedema [Unknown]
  - Infusion site oedema [Unknown]
  - Infusion site erythema [Unknown]
  - Product use complaint [Unknown]
  - Polyp [Unknown]
  - Infusion site bruising [Unknown]
  - Infusion site erythema [Unknown]
  - Infusion site oedema [Unknown]
  - Muscle spasms [Not Recovered/Not Resolved]
  - Infusion site erythema [Unknown]
  - Infusion site oedema [Unknown]
  - Infusion site erythema [Unknown]
  - Infusion site oedema [Unknown]
  - Infusion site erythema [Unknown]
  - Infusion site swelling [Unknown]
  - Infusion site oedema [Unknown]
  - Infusion site erythema [Unknown]

NARRATIVE: CASE EVENT DATE: 20250201
